FAERS Safety Report 25948858 (Version 1)
Quarter: 2025Q4

REPORT INFORMATION
  Report Type: Report from Study
  Country: US (occurrence: US)
  Receive Date: 20251022
  Receipt Date: 20251022
  Transmission Date: 20260117
  Serious: Yes (Hospitalization)
  Sender: MARINUS PHARMACEUTICALS
  Company Number: US-MARINUS PHARMACEUTICALS, INC.-MAR2025000256

PATIENT

DRUGS (3)
  1. GANAXOLONE [Suspect]
     Active Substance: GANAXOLONE
     Indication: Product used for unknown indication
     Dosage: 12 MILLILITER, QD
     Route: 048
  2. GANAXOLONE [Suspect]
     Active Substance: GANAXOLONE
     Dosage: 10 MILLILITER, QD
     Route: 048
  3. GANAXOLONE [Suspect]
     Active Substance: GANAXOLONE
     Dosage: 14 MILLILITER, QD
     Route: 048

REACTIONS (1)
  - Vagus nerve disorder [Unknown]
